FAERS Safety Report 4420738-X (Version None)
Quarter: 2004Q3

REPORT INFORMATION
  Report Type: 
  Country: None (occurrence: None)
  Receive Date: 20040809
  Receipt Date: 20040511
  Transmission Date: 20050211
  Serious: No
  Sender: FDA-Public Use
  Company Number: US-GLAXOSMITHKLINE-A0510423A

PATIENT
  Age: 74 Year
  Sex: Male

DRUGS (4)
  1. PAXIL [Suspect]
     Dosage: 20MG PER DAY
     Route: 048
  2. ZOCOR [Concomitant]
  3. COUMADIN [Concomitant]
  4. METOPROLOL [Concomitant]

REACTIONS (3)
  - DERMATITIS [None]
  - INFLAMMATION [None]
  - LICHEN PLANUS [None]
